FAERS Safety Report 20764638 (Version 10)
Quarter: 2025Q2

REPORT INFORMATION
  Report Type: Report from Study
  Country: DE (occurrence: DE)
  Receive Date: 20220428
  Receipt Date: 20250623
  Transmission Date: 20250717
  Serious: Yes (Hospitalization)
  Sender: PFIZER
  Company Number: DE-PFM-2022-03706

PATIENT
  Age: 60 Year
  Sex: Female
  Weight: 50 kg

DRUGS (27)
  1. BRAFTOVI [Suspect]
     Active Substance: ENCORAFENIB
     Indication: Colorectal cancer
     Dosage: 225 MG PER DAY
     Route: 048
     Dates: start: 20220414
  2. BRAFTOVI [Suspect]
     Active Substance: ENCORAFENIB
     Dosage: 300 MG DAILY
     Route: 048
     Dates: start: 20220424, end: 202206
  3. CETUXIMAB [Suspect]
     Active Substance: CETUXIMAB
     Indication: Colorectal cancer
     Dosage: 400 MG/M2, WEEKLY (FORMULATION LIQUID DILUTION)
     Route: 042
     Dates: start: 20220414
  4. CETUXIMAB [Suspect]
     Active Substance: CETUXIMAB
     Route: 042
     Dates: start: 20220517, end: 20220601
  5. CETUXIMAB [Suspect]
     Active Substance: CETUXIMAB
     Dosage: 225 MG/M2, WEEKLY (FORMULATION LIQUID DILUTION)
     Route: 042
  6. CETUXIMAB [Suspect]
     Active Substance: CETUXIMAB
     Dosage: 600 MG/M2, WEEKLY (FORMULATION LIQUID DILUTION)
     Route: 042
  7. AMINO ACIDS\DEXTROSE\ELECTROLYTES NOS\SOYBEAN OIL [Concomitant]
     Active Substance: AMINO ACIDS\DEXTROSE\ELECTROLYTES NOS\SOYBEAN OIL
     Indication: Cachexia
     Dosage: 986 ML, BID (2/DAY)
     Route: 042
  8. DOMPERIDONE [Concomitant]
     Active Substance: DOMPERIDONE
     Indication: Prophylaxis
     Dosage: 10 MG, TID (3/DAY) (DOMPERIDON ABZ 10 MG)
     Route: 048
     Dates: start: 20210303
  9. NOVAMINSULFON (METAMIZOL NATRIUM) [Concomitant]
     Indication: Pain
     Dosage: 500 MG, QID (4/DAY)
     Route: 048
     Dates: start: 20111123
  10. PANTROPAZOL ARISTO [Concomitant]
     Indication: Prophylaxis
     Dosage: 40 MG,DAILY
     Route: 048
     Dates: start: 20211123
  11. CARBOHYDRATES\FATTY ACIDS\MINERALS\PROTEIN\VITAMINS [Concomitant]
     Active Substance: CARBOHYDRATES\FATTY ACIDS\MINERALS\PROTEIN\VITAMINS
     Indication: Cachexia
     Dosage: 1 FLASK, BID (2/DAY) (FRESUBIN DRINK)
     Route: 048
     Dates: start: 20211227
  12. SAB SIMPLEX [DIMETICONE] [Concomitant]
     Indication: Prophylaxis
     Dosage: 30 DROPS, TID (3/DAY) DIMETICON 350 64 MG/ML)
     Route: 048
     Dates: start: 20211227
  13. POLYETHYLENE GLYCOLS [Concomitant]
     Active Substance: POLYETHYLENE GLYCOLS
     Indication: Prophylaxis
     Dosage: 13.7 G, BID (2/DAY)PLV.Z.H.E.L.Z.E, FORMULATION: POWDER FOR THE PREPARATION OF A SOLUTION FOR INGES
     Route: 048
     Dates: start: 20211227
  14. FENTANYL [Concomitant]
     Active Substance: FENTANYL
     Indication: Pain
     Route: 062
     Dates: start: 20220303
  15. ZOPICION PUREN [Concomitant]
     Indication: Insomnia
     Dosage: 7.5 MG, QD (1/DAY)
     Route: 048
     Dates: start: 20220303
  16. TORSEMIDE [Concomitant]
     Active Substance: TORSEMIDE
     Indication: Pulmonary oedema
     Dosage: 10 MG, BID (2/DAY) (AL)
     Route: 048
     Dates: start: 20220401
  17. SPIRONOLACTONE [Concomitant]
     Active Substance: SPIRONOLACTONE
     Indication: Pulmonary oedema
     Dosage: 50 MG, BID (2/DAY) (SPIRONOLACTON AL 50)
     Route: 048
     Dates: start: 20220401
  18. FENTANYL CITRATE [Concomitant]
     Active Substance: FENTANYL CITRATE
     Indication: Pain
     Route: 002
     Dates: start: 20220401
  19. CODEINE PHOSPHATE [Concomitant]
     Active Substance: CODEINE PHOSPHATE
     Indication: Pain
     Route: 048
     Dates: start: 20220419
  20. PEROCUR [Concomitant]
     Indication: Prophylaxis
     Dosage: 250 MG, TID (3/DAY)
     Route: 048
     Dates: start: 20220303
  21. ALIZAPRIDE HYDROCHLORIDE [Concomitant]
     Active Substance: ALIZAPRIDE HYDROCHLORIDE
     Indication: Prophylaxis
     Dosage: 50 MG, TID (3/DAY)
     Route: 048
     Dates: start: 20220401
  22. OXYGEN [Concomitant]
     Active Substance: OXYGEN
     Indication: Respiratory failure
     Dates: start: 20220401
  23. ENOXAPARIN SODIUM [Concomitant]
     Active Substance: ENOXAPARIN SODIUM
     Indication: Prophylaxis
     Dosage: (INHIXA 100.000 I.E. (1000 MG)/10 ML (ENOXAPARIN))
     Route: 058
     Dates: start: 20220401
  24. ENOXAPARIN [Concomitant]
     Active Substance: ENOXAPARIN
     Indication: Prophylaxis
     Dosage: 50 MG, BID (2/DAY)
     Route: 058
     Dates: start: 20220419
  25. AMPHO-MONORAL [Concomitant]
     Route: 065
     Dates: start: 20220517
  26. METHYLPREDNISOLONE ACEPONATE [Concomitant]
     Active Substance: METHYLPREDNISOLONE ACEPONATE
     Route: 065
     Dates: start: 20220517
  27. HEXORAL [HEXETIDINE] [Concomitant]
     Route: 048
     Dates: start: 20220517

REACTIONS (3)
  - Abdominal pain [Recovered/Resolved]
  - Stomatitis [Unknown]
  - Rash [Recovering/Resolving]

NARRATIVE: CASE EVENT DATE: 20220419
